FAERS Safety Report 10456745 (Version 1)
Quarter: 2014Q3

REPORT INFORMATION
  Report Type: Spontaneous
  Country: US (occurrence: None)
  Receive Date: 20140828
  Receipt Date: 20140828
  Transmission Date: 20150326
  Serious: Yes (Other)
  Sender: FDA-Public Use
  Company Number: PHEH2013US023864

PATIENT
  Age: 45 Year
  Sex: Female
  Weight: 64.4 kg

DRUGS (3)
  1. SANDOSTATIN LAR DEPOT [Suspect]
     Active Substance: OCTREOTIDE ACETATE
     Indication: CARCINOID SYNDROME
     Route: 030
     Dates: start: 20130429, end: 20131111
  2. TROPICAMIDE. [Concomitant]
     Active Substance: TROPICAMIDE
  3. PROPARACAINE (PROXYMETACAINE) [Concomitant]

REACTIONS (5)
  - Lip oedema [None]
  - Dermatitis [None]
  - Eye swelling [None]
  - Hypersensitivity [None]
  - Rash [None]

NARRATIVE: CASE EVENT DATE: 20131106
